FAERS Safety Report 9188000 (Version 2)
Quarter: 2013Q1

REPORT INFORMATION
  Report Type: Spontaneous
  Country: US (occurrence: US)
  Receive Date: 20130325
  Receipt Date: 20130325
  Transmission Date: 20140127
  Serious: Yes (Death, Other)
  Sender: FDA-Public Use
  Company Number: US-PFIZER INC-2005131128

PATIENT
  Age: 66 Year
  Sex: Male

DRUGS (7)
  1. SERTRALINE [Suspect]
     Route: 048
  2. SERTRALINE [Suspect]
     Route: 048
  3. NAPROXEN [Suspect]
     Route: 048
  4. NAPROXEN [Suspect]
     Route: 048
  5. PARACETAMOL/CODEINE [Suspect]
     Route: 048
  6. IBUPROFEN [Suspect]
     Route: 048
  7. ROFECOXIB [Suspect]
     Route: 048

REACTIONS (8)
  - Completed suicide [Fatal]
  - Respiratory arrest [Fatal]
  - Depressed level of consciousness [Fatal]
  - Intentional overdose [Fatal]
  - Blood pressure increased [None]
  - Hyperhidrosis [None]
  - Toxicity to various agents [None]
  - Heart rate increased [None]
